FAERS Safety Report 24641294 (Version 3)
Quarter: 2025Q3

REPORT INFORMATION
  Report Type: Spontaneous
  Country: JP (occurrence: JP)
  Receive Date: 20241120
  Receipt Date: 20250810
  Transmission Date: 20251021
  Serious: Yes (Other)
  Sender: ALEXION PHARMACEUTICALS
  Company Number: JP-ASTRAZENECA-240125984_064320_P_1

PATIENT
  Age: 81 Year
  Sex: Male

DRUGS (5)
  1. ANDEXXA [Suspect]
     Active Substance: ANDEXANET ALFA
     Indication: Cerebral haemorrhage
  2. ANDEXXA [Suspect]
     Active Substance: ANDEXANET ALFA
  3. EDOXABAN TOSYLATE [Concomitant]
     Active Substance: EDOXABAN TOSYLATE
  4. EDOXABAN TOSYLATE [Concomitant]
     Active Substance: EDOXABAN TOSYLATE
  5. ASPIRIN [Concomitant]
     Active Substance: ASPIRIN
     Route: 065

REACTIONS (1)
  - Haematoma [Unknown]

NARRATIVE: CASE EVENT DATE: 20231231
